FAERS Safety Report 8879154 (Version 1)
Quarter: 2012Q4

REPORT INFORMATION
  Report Type: Spontaneous
  Country: US (occurrence: None)
  Receive Date: 20121031
  Receipt Date: 20121031
  Transmission Date: 20130627
  Serious: Yes (Other)
  Sender: FDA-Public Use
  Company Number: None

PATIENT
  Age: 75 Year
  Sex: Female
  Weight: 90 kg

DRUGS (1)
  1. PROAIR HFA [Suspect]
     Indication: WHEEZING
     Dosage: 1-2 puffs every 4 hrs prn Inhal
     Route: 055
     Dates: start: 20121013, end: 20121016

REACTIONS (3)
  - Drug ineffective [None]
  - Device ineffective [None]
  - Device malfunction [None]
